FAERS Safety Report 18764433 (Version 3)
Quarter: 2022Q2

REPORT INFORMATION
  Report Type: Spontaneous
  Country: BR (occurrence: BR)
  Receive Date: 20210120
  Receipt Date: 20220601
  Transmission Date: 20220721
  Serious: Yes (Other)
  Sender: FDA-Public Use
  Company Number: BR-BIOMARINAP-BR-2021-134416

PATIENT
  Age: 16 Year
  Sex: Female
  Weight: 30 kg

DRUGS (4)
  1. VIMIZIM [Suspect]
     Active Substance: ELOSULFASE ALFA
     Indication: Mucopolysaccharidosis IV
     Dosage: UNK, QW
     Route: 042
     Dates: start: 201506
  2. CAPTOPRIL [Concomitant]
     Active Substance: CAPTOPRIL
     Indication: Blood pressure abnormal
     Dosage: 6.25 MILLIGRAM
  3. FUROSEMIDE [Concomitant]
     Active Substance: FUROSEMIDE
     Indication: Product used for unknown indication
     Dosage: 10 MILLIGRAM, 1/4 DAY
  4. RAMIPRIL [Concomitant]
     Active Substance: RAMIPRIL
     Indication: Product used for unknown indication
     Dosage: 1 TABLET, QD

REACTIONS (2)
  - Gait inability [Not Recovered/Not Resolved]
  - Knee deformity [Not Recovered/Not Resolved]

NARRATIVE: CASE EVENT DATE: 20190101
